FAERS Safety Report 7313916-3 (Version None)
Quarter: 2011Q1

REPORT INFORMATION
  Report Type: 
  Country: None (occurrence: None)
  Receive Date: 20110225
  Receipt Date: 20110221
  Transmission Date: 20110831
  Serious: Yes (Other)
  Sender: FDA-Public Use
  Company Number: CA-BRISTOL-MYERS SQUIBB COMPANY-15565294

PATIENT
  Sex: Male

DRUGS (2)
  1. SEROQUEL [Suspect]
  2. ABILIFY [Suspect]
     Route: 048

REACTIONS (1)
  - ARRHYTHMIA [None]
